FAERS Safety Report 8600023-2 (Version None)
Quarter: 2012Q3

REPORT INFORMATION
  Report Type: 
  Country: None (occurrence: None)
  Receive Date: 20120816
  Receipt Date: 20120808
  Transmission Date: 20120928
  Serious: Yes (Other)
  Sender: FDA-Public Use
  Company Number: CHPA2012US017860

PATIENT
  Age: 65 Year
  Sex: Female

DRUGS (4)
  1. BENEFIBER SUGAR FREE [Suspect]
     Dosage: UNK, UNK
  2. BENTYLOL [Concomitant]
     Indication: IRRITABLE BOWEL SYNDROME
     Dosage: UNK, PRN
  3. BENEFIBER W/ WHEAT DEXTRIN [Suspect]
     Indication: CONSTIPATION
     Dosage: 4.5 TSP, QD
     Route: 048
     Dates: start: 20120101
  4. BENEFIBER W/ WHEAT DEXTRIN [Suspect]
     Dosage: 2 TSP, QD
     Route: 048

REACTIONS (4)
  - INCORRECT DOSE ADMINISTERED [None]
  - ABDOMINAL PAIN UPPER [None]
  - BREAST CANCER [None]
  - OFF LABEL USE [None]
